FAERS Safety Report 21055903 (Version 2)
Quarter: 2022Q3

REPORT INFORMATION
  Report Type: Spontaneous
  Country: BR (occurrence: None)
  Receive Date: 20220708
  Receipt Date: 20220719
  Transmission Date: 20221026
  Serious: Yes (Other)
  Sender: FDA-Public Use
  Company Number: BR-ROCHE-3127529

PATIENT
  Age: 38 Year
  Sex: Male

DRUGS (6)
  1. AVASTIN [Suspect]
     Active Substance: BEVACIZUMAB
     Indication: Glioblastoma
     Dosage: 50GY
     Route: 065
     Dates: start: 20210510, end: 20210519
  2. AVASTIN [Suspect]
     Active Substance: BEVACIZUMAB
     Route: 042
  3. TEMOZOLOMIDE [Concomitant]
     Active Substance: TEMOZOLOMIDE
     Indication: Glioblastoma
     Dosage: 59GY
     Dates: start: 20190909, end: 20211018
  4. TEMOZOLOMIDE [Concomitant]
     Active Substance: TEMOZOLOMIDE
     Dates: start: 20200415
  5. OSIMERTINIB [Concomitant]
     Active Substance: OSIMERTINIB
     Indication: Glioblastoma
     Dosage: 80 MG/DIA
  6. LOMUSTINE [Concomitant]
     Active Substance: LOMUSTINE
     Indication: Glioblastoma
     Dates: start: 20220602

REACTIONS (3)
  - Neoplasm progression [Unknown]
  - Glioblastoma [Unknown]
  - Off label use [Unknown]

NARRATIVE: CASE EVENT DATE: 20211101
